FAERS Safety Report 7314750-0 (Version None)
Quarter: 2011Q1

REPORT INFORMATION
  Report Type: 
  Country: None (occurrence: None)
  Receive Date: 20110225
  Receipt Date: 20110125
  Transmission Date: 20110831
  Serious: No
  Sender: FDA-Public Use
  Company Number: US-MYLANLABS-2010S1021819

PATIENT
  Age: 14 Year
  Sex: Female
  Weight: 48.4 kg

DRUGS (11)
  1. SOTRET [Suspect]
     Indication: ACNE CYSTIC
     Route: 048
     Dates: start: 20100601, end: 20101123
  2. LEXAPRO [Concomitant]
     Dates: end: 20100701
  3. AMNESTEEM [Suspect]
     Indication: ACNE CYSTIC
     Route: 048
     Dates: start: 20100601, end: 20101123
  4. AMNESTEEM [Suspect]
     Indication: SCAR
     Route: 048
     Dates: start: 20100601, end: 20101123
  5. CLARAVIS [Suspect]
     Indication: SCAR
     Route: 048
     Dates: start: 20100601, end: 20101123
  6. ALLEGRA D 24 HOUR [Concomitant]
     Indication: MULTIPLE ALLERGIES
  7. CLARAVIS [Suspect]
     Indication: ACNE CYSTIC
     Route: 048
     Dates: start: 20100601, end: 20101123
  8. SOTRET [Suspect]
     Indication: SCAR
     Route: 048
     Dates: start: 20100601, end: 20101123
  9. AMNESTEEM [Suspect]
     Route: 048
     Dates: start: 20100601, end: 20101123
  10. WELLBUTRIN SR [Concomitant]
     Indication: DEPRESSION
     Dates: start: 20100701
  11. AMNESTEEM [Suspect]
     Route: 048
     Dates: start: 20100601, end: 20101123

REACTIONS (6)
  - MOOD ALTERED [None]
  - DIZZINESS [None]
  - NASAL DRYNESS [None]
  - ADVERSE EVENT [None]
  - LIP DRY [None]
  - DRY EYE [None]
